FAERS Safety Report 5397247-7 (Version None)
Quarter: 2007Q3

REPORT INFORMATION
  Report Type: 
  Country: None (occurrence: None)
  Receive Date: 20070723
  Receipt Date: 20070717
  Transmission Date: 20080115
  Serious: Yes (Death)
  Sender: FDA-Public Use
  Company Number: 062-C5013-07070869

PATIENT
  Age: 65 Year
  Sex: Male
  Weight: 76 kg

DRUGS (2)
  1. CC-5013 (LENALIDOMIDE) (CAPSULES) [Suspect]
     Indication: MULTIPLE MYELOMA
     Dosage: 25 MG, DAILY, PER ORAL
     Route: 048
     Dates: start: 20070622, end: 20070706
  2. DEXAMETHASONE TAB [Suspect]
     Indication: MULTIPLE MYELOMA
     Dosage: 40 MG, DAILY, PER ORAL
     Route: 048
     Dates: start: 20070622

REACTIONS (5)
  - GENERAL PHYSICAL HEALTH DETERIORATION [None]
  - INADEQUATE ANALGESIA [None]
  - OSTEOLYSIS [None]
  - PAIN [None]
  - PNEUMONIA [None]
